FAERS Safety Report 9481533 (Version 1)
Quarter: 2013Q3

REPORT INFORMATION
  Report Type: Spontaneous
  Country: US (occurrence: US)
  Receive Date: 20130828
  Receipt Date: 20130828
  Transmission Date: 20140515
  Serious: Yes (Hospitalization)
  Sender: FDA-Public Use
  Company Number: US-AMGEN-KDL175357

PATIENT
  Age: 66 Year
  Sex: Female

DRUGS (2)
  1. ENBREL [Suspect]
     Indication: PSORIATIC ARTHROPATHY
     Dosage: 50 MG, QWK
     Route: 058
     Dates: start: 20020220
  2. ENBREL [Suspect]
     Indication: PSORIASIS

REACTIONS (6)
  - Upper limb fracture [Unknown]
  - Staphylococcal infection [Unknown]
  - Psoriasis [Not Recovered/Not Resolved]
  - Condition aggravated [Unknown]
  - Arthralgia [Unknown]
  - Cellulitis [Recovered/Resolved]
